FAERS Safety Report 23782517 (Version 8)
Quarter: 2024Q3

REPORT INFORMATION
  Report Type: Spontaneous
  Country: GB (occurrence: GB)
  Receive Date: 20240425
  Receipt Date: 20240927
  Transmission Date: 20241017
  Serious: No
  Sender: PFIZER
  Company Number: GB-PFIZER INC-PV202400052028

PATIENT
  Age: 63 Year
  Sex: Male

DRUGS (1)
  1. GENOTROPIN [Suspect]
     Active Substance: SOMATROPIN
     Indication: Hyperpituitarism
     Dosage: 0.2 MG, 1X/DAY
     Route: 058
     Dates: start: 20240409

REACTIONS (5)
  - Device use error [Unknown]
  - Device delivery system issue [Unknown]
  - Device operational issue [Unknown]
  - Device leakage [Unknown]
  - Drug dose omission by device [Unknown]
